FAERS Safety Report 4837809-6 (Version None)
Quarter: 2005Q4

REPORT INFORMATION
  Report Type: 
  Country: None (occurrence: None)
  Receive Date: 20051128
  Receipt Date: 20051004
  Transmission Date: 20060501
  Serious: Yes (Hospitalization, Disabling)
  Sender: FDA-Public Use
  Company Number: US-MERCK-0510USA03084

PATIENT
  Age: 55 Year
  Sex: Male

DRUGS (10)
  1. VIOXX [Suspect]
     Route: 048
     Dates: start: 20011022, end: 20020523
  2. VIOXX [Suspect]
     Route: 048
     Dates: start: 20011022, end: 20020523
  3. ASPIRIN [Concomitant]
     Route: 065
  4. PLAVIX [Concomitant]
     Route: 065
  5. XANAX [Concomitant]
     Route: 065
  6. LORTAB [Concomitant]
     Route: 065
  7. ULTRACET [Concomitant]
     Route: 065
  8. LIPITOR [Concomitant]
     Route: 065
  9. QUININE SULFATE [Concomitant]
     Route: 065
  10. PIROXICAM [Concomitant]
     Route: 065

REACTIONS (18)
  - ANGINA UNSTABLE [None]
  - ARTERIAL OCCLUSIVE DISEASE [None]
  - ASPIRATION [None]
  - BACK DISORDER [None]
  - BLOOD PRESSURE SYSTOLIC DECREASED [None]
  - CEREBROVASCULAR ACCIDENT [None]
  - CHEST PAIN [None]
  - DIZZINESS [None]
  - DYSPHONIA [None]
  - GRAFT INFECTION [None]
  - HAEMATOMA [None]
  - HAEMORRHOIDS [None]
  - OVERDOSE [None]
  - PERIPHERAL PARALYSIS [None]
  - PERIPHERAL VASCULAR DISORDER [None]
  - PNEUMONIA [None]
  - STAPHYLOCOCCAL INFECTION [None]
  - SYNCOPE [None]
